FAERS Safety Report 19154949 (Version 2)
Quarter: 2021Q2

REPORT INFORMATION
  Report Type: Spontaneous
  Country: US (occurrence: US)
  Receive Date: 20210419
  Receipt Date: 20210427
  Transmission Date: 20210717
  Serious: Yes (Hospitalization, Other)
  Sender: FDA-Public Use
  Company Number: US-VISTAPHARM, INC.-VER202104-001083

PATIENT
  Age: 37 Year
  Sex: Female

DRUGS (4)
  1. LACTULOSE. [Suspect]
     Active Substance: LACTULOSE
     Indication: ENCEPHALOPATHY
     Dosage: UNKNOWN
  2. VANCOMYCIN [Concomitant]
     Active Substance: VANCOMYCIN
     Indication: ESCHERICHIA BACTERAEMIA
     Dosage: UNKNOWN
  3. CEFEPIME [Concomitant]
     Active Substance: CEFEPIME HYDROCHLORIDE
     Indication: ESCHERICHIA BACTERAEMIA
     Dosage: UNKNOWN
  4. RIFAXIMIN. [Concomitant]
     Active Substance: RIFAXIMIN
     Indication: ENCEPHALOPATHY
     Dosage: UNKNOWN

REACTIONS (2)
  - Product use in unapproved indication [Unknown]
  - Pneumatosis intestinalis [Recovered/Resolved]
